FAERS Safety Report 21389826 (Version 1)
Quarter: 2022Q3

REPORT INFORMATION
  Report Type: Spontaneous
  Country: US (occurrence: None)
  Receive Date: 20220929
  Receipt Date: 20220929
  Transmission Date: 20221027
  Serious: Yes (Hospitalization)
  Sender: FDA-Public Use
  Company Number: US-ACS-20220122

PATIENT
  Sex: Male

DRUGS (1)
  1. ERTAPENEM [Suspect]
     Active Substance: ERTAPENEM
     Indication: Kidney infection
     Dosage: ()
     Route: 040
     Dates: start: 2020, end: 2020

REACTIONS (1)
  - Dysgeusia [Unknown]
